FAERS Safety Report 7647834-8 (Version None)
Quarter: 2011Q3

REPORT INFORMATION
  Report Type: 
  Country: None (occurrence: None)
  Receive Date: 20110801
  Receipt Date: 20110722
  Transmission Date: 20111222
  Serious: Yes (Other)
  Sender: FDA-Public Use
  Company Number: GB-TEVA-293112ISR

PATIENT
  Age: 28 Year
  Sex: Female
  Weight: 93.6 kg

DRUGS (1)
  1. LEVONORGESTREL [Suspect]
     Indication: PRODUCT USED FOR UNKNOWN INDICATION
     Route: 065
     Dates: start: 20110711, end: 20110712

REACTIONS (4)
  - DIZZINESS [None]
  - GAIT DISTURBANCE [None]
  - PALLOR [None]
  - NAUSEA [None]
